FAERS Safety Report 5235503-3 (Version None)
Quarter: 2007Q1

REPORT INFORMATION
  Report Type: 
  Country: None (occurrence: None)
  Receive Date: 20070212
  Receipt Date: 20070129
  Transmission Date: 20070707
  Serious: Yes (Other)
  Sender: FDA-Public Use
  Company Number: PHBS2007JP01902

PATIENT

DRUGS (4)
  1. STEROIDS NOS [Concomitant]
  2. ANTIRHEUMATIC (INCL.ANTIPHLOGISTICS) [Concomitant]
  3. ANTIBIOTICS [Concomitant]
  4. TEGRETOL [Suspect]
     Indication: PAIN
     Route: 048

REACTIONS (2)
  - HYPONATRAEMIA [None]
  - PULMONARY OEDEMA [None]
